FAERS Safety Report 13879239 (Version 1)
Quarter: 2017Q3

REPORT INFORMATION
  Report Type: Report from Study
  Country: US (occurrence: US)
  Receive Date: 20170817
  Receipt Date: 20170817
  Transmission Date: 20171127
  Serious: Yes (Hospitalization, Other)
  Sender: FDA-Public Use
  Company Number: US-GILEAD-2017-0288564

PATIENT
  Sex: Male

DRUGS (1)
  1. RANOLAZINE. [Suspect]
     Active Substance: RANOLAZINE
     Indication: PRODUCT USED FOR UNKNOWN INDICATION
     Dosage: 500 MG, UNK
     Route: 048
     Dates: start: 201610, end: 201610

REACTIONS (4)
  - Diabetes mellitus [Not Recovered/Not Resolved]
  - Influenza [Unknown]
  - Prostate cancer [Not Recovered/Not Resolved]
  - Spinal column stenosis [Not Recovered/Not Resolved]
